FAERS Safety Report 17145778 (Version 1)
Quarter: 2019Q4

REPORT INFORMATION
  Report Type: Report from Study
  Country: CA (occurrence: CA)
  Receive Date: 20191212
  Receipt Date: 20191212
  Transmission Date: 20200122
  Serious: Yes (Other)
  Sender: FDA-Public Use
  Company Number: CA-ROCHE-1388475

PATIENT
  Age: 36 Year
  Sex: Female

DRUGS (32)
  1. CELEBREX [Concomitant]
     Active Substance: CELECOXIB
     Dosage: ONCE EVERY 2-30DAYS
     Route: 065
  2. PREDNISONE. [Concomitant]
     Active Substance: PREDNISONE
     Route: 065
     Dates: start: 20170320
  3. METHYLPREDNISOLONE. [Concomitant]
     Active Substance: METHYLPREDNISOLONE
     Indication: PREMEDICATION
     Route: 042
     Dates: start: 20140320
  4. RITUXAN [Suspect]
     Active Substance: RITUXIMAB
     Indication: RHEUMATOID ARTHRITIS
     Dosage: RECENT DOSE IN APR AND JUN/2016 AND ON 04/MAY/2017
     Route: 042
     Dates: start: 20140320
  5. ESOMEPRAZOLE. [Concomitant]
     Active Substance: ESOMEPRAZOLE MAGNESIUM
     Route: 065
  6. PREDNISONE. [Concomitant]
     Active Substance: PREDNISONE
     Route: 048
     Dates: start: 20170407
  7. TYLENOL [Concomitant]
     Active Substance: ACETAMINOPHEN
  8. FOLIC ACID. [Concomitant]
     Active Substance: FOLIC ACID
     Dosage: CURRENTLY HELD
     Route: 065
  9. NABILONE [Concomitant]
     Active Substance: NABILONE
     Route: 065
  10. CLOBETASOL PROPIONATE. [Concomitant]
     Active Substance: CLOBETASOL PROPIONATE
     Dosage: ON HAND/FOOT IF NEEDED FOR ECZEMA
     Route: 065
  11. DEPO-MEDROL [Concomitant]
     Active Substance: METHYLPREDNISOLONE ACETATE
     Route: 065
     Dates: start: 20170101
  12. PLAQUENIL [Concomitant]
     Active Substance: HYDROXYCHLOROQUINE SULFATE
     Route: 065
  13. DILAUDID [Concomitant]
     Active Substance: HYDROMORPHONE HYDROCHLORIDE
     Route: 065
  14. DICLECTIN [Concomitant]
     Active Substance: DOXYLAMINE SUCCINATE\PYRIDOXINE HYDROCHLORIDE
     Dosage: 4 TABLETS DAILY
     Route: 065
  15. VENTOLIN [Concomitant]
     Active Substance: ALBUTEROL SULFATE
     Dosage: 4 PUFF
     Route: 065
  16. SINGULAIR [Concomitant]
     Active Substance: MONTELUKAST SODIUM
     Dosage: AT BED TIME
     Route: 065
  17. CLONAZEPAM. [Concomitant]
     Active Substance: CLONAZEPAM
     Route: 065
  18. FEMARA [Concomitant]
     Active Substance: LETROZOLE
  19. HYDROCORTISONE. [Concomitant]
     Active Substance: HYDROCORTISONE
     Route: 065
     Dates: start: 20170407
  20. VIT D [Concomitant]
     Active Substance: VITAMIN D NOS
  21. ACETAMINOPHEN. [Concomitant]
     Active Substance: ACETAMINOPHEN
     Indication: PREMEDICATION
     Route: 048
     Dates: start: 20140320
  22. DEPO-MEDROL [Concomitant]
     Active Substance: METHYLPREDNISOLONE ACETATE
     Route: 065
     Dates: start: 20170320
  23. NASONEX [Concomitant]
     Active Substance: MOMETASONE FUROATE
     Dosage: TWO SPRAYS EACH NOSTRIL AT BED TIME
     Route: 065
  24. HYDROMORPH CONTIN [Concomitant]
     Active Substance: HYDROMORPHONE
     Route: 042
     Dates: start: 20170407
  25. BACLOFEN. [Concomitant]
     Active Substance: BACLOFEN
  26. LABETALOL [Concomitant]
     Active Substance: LABETALOL\LABETALOL HYDROCHLORIDE
     Route: 065
  27. FLOVENT [Concomitant]
     Active Substance: FLUTICASONE PROPIONATE
     Dosage: 2 PUFF
     Route: 065
  28. DIPHENHYDRAMINE HCL [Concomitant]
     Active Substance: DIPHENHYDRAMINE HYDROCHLORIDE
     Indication: PREMEDICATION
     Route: 048
     Dates: start: 20140320
  29. PREDNISONE. [Concomitant]
     Active Substance: PREDNISONE
     Route: 065
     Dates: start: 20170101
  30. PREDNISONE. [Concomitant]
     Active Substance: PREDNISONE
     Route: 048
     Dates: start: 20170403
  31. VACCINIUM SPP. [Concomitant]
  32. GRAVOL [Concomitant]
     Active Substance: DIMENHYDRINATE
     Dosage: 1 TABLET IF NEEDED.
     Route: 065

REACTIONS (10)
  - Abortion spontaneous [Unknown]
  - Pruritus [Recovered/Resolved]
  - Upper respiratory tract infection [Recovered/Resolved]
  - Ear pruritus [Recovered/Resolved]
  - Sinusitis [Unknown]
  - Maternal exposure during pregnancy [Unknown]
  - Infusion related reaction [Unknown]
  - Hypersensitivity [Unknown]
  - Asthma [Unknown]
  - Rheumatoid arthritis [Recovered/Resolved]

NARRATIVE: CASE EVENT DATE: 20140515
